FAERS Safety Report 21870036 (Version 1)
Quarter: 2023Q1

REPORT INFORMATION
  Report Type: Spontaneous
  Country: CN (occurrence: None)
  Receive Date: 20230117
  Receipt Date: 20230117
  Transmission Date: 20230417
  Serious: Yes (Other)
  Sender: FDA-Public Use
  Company Number: CN-ROCHE-3262093

PATIENT
  Age: 45 Year
  Sex: Female

DRUGS (16)
  1. POLIVY [Suspect]
     Active Substance: POLATUZUMAB VEDOTIN-PIIQ
     Indication: Chronic lymphocytic leukaemia
     Route: 065
     Dates: start: 20220601
  2. VENETOCLAX [Concomitant]
     Active Substance: VENETOCLAX
     Indication: Chronic lymphocytic leukaemia
     Dosage: VENETOCLAX + IBRUTINIB
     Dates: start: 20220411
  3. VENETOCLAX [Concomitant]
     Active Substance: VENETOCLAX
     Dosage: VENETOCLAX + IBRUTINIB + POLATUZUMAB VEDOTIN
     Dates: start: 20220601
  4. VENETOCLAX [Concomitant]
     Active Substance: VENETOCLAX
     Dosage: PRETREATMENT, D-15~D-2
     Dates: start: 2022
  5. IBRUTINIB [Concomitant]
     Active Substance: IBRUTINIB
     Indication: Chronic lymphocytic leukaemia
     Dosage: VENETOCLAX + IBRUTINIB
     Dates: start: 20220411
  6. IBRUTINIB [Concomitant]
     Active Substance: IBRUTINIB
     Dosage: VENETOCLAX + IBRUTINIB + POLATUZUMAB VEDOTIN
     Dates: start: 20220601
  7. LOMUSTINE [Concomitant]
     Active Substance: LOMUSTINE
     Dosage: D-8
     Dates: start: 2022
  8. BUSULFAN [Concomitant]
     Active Substance: BUSULFAN
     Dosage: D-7~D-5
     Dates: start: 2022
  9. FLUDARABINE [Concomitant]
     Active Substance: FLUDARABINE PHOSPHATE
     Dosage: D-7~-2
     Dates: start: 2022
  10. MYCOPHENOLATE MOFETIL [Concomitant]
     Active Substance: MYCOPHENOLATE MOFETIL
     Dosage: D-5~D21
     Dates: start: 2022
  11. CYCLOSPORINE [Concomitant]
     Active Substance: CYCLOSPORINE
     Dates: start: 2022
  12. METHOTREXATE [Concomitant]
     Active Substance: METHOTREXATE
     Dosage: D1
     Dates: start: 2022
  13. METHOTREXATE [Concomitant]
     Active Substance: METHOTREXATE
     Dosage: D3, D5, D11
     Dates: start: 2022
  14. VORICONAZOLE [Concomitant]
     Active Substance: VORICONAZOLE
     Indication: Infection prophylaxis
     Dates: start: 2022
  15. VALACYCLOVIR [Concomitant]
     Active Substance: VALACYCLOVIR HYDROCHLORIDE
     Indication: Infection prophylaxis
     Dates: start: 2022
  16. SULFAMETHOXAZOLE [Concomitant]
     Active Substance: SULFAMETHOXAZOLE
     Indication: Infection prophylaxis
     Dates: start: 2022

REACTIONS (4)
  - Cystitis [Recovered/Resolved]
  - Atrial fibrillation [Recovering/Resolving]
  - Upper respiratory tract infection [Recovering/Resolving]
  - Cytomegalovirus infection [Recovered/Resolved]
